FAERS Safety Report 14857861 (Version 3)
Quarter: 2018Q2

REPORT INFORMATION
  Report Type: Spontaneous
  Country: DE (occurrence: DE)
  Receive Date: 20180508
  Receipt Date: 20180622
  Transmission Date: 20180711
  Serious: Yes (Life-Threatening, Hospitalization, Other)
  Sender: FDA-Public Use
  Company Number: DE-B.I. PHARMACEUTICALS,INC./RIDGEFIELD-2018-BI-024489

PATIENT
  Age: 84 Year
  Sex: Female
  Weight: 95 kg

DRUGS (1)
  1. PRADAXA [Suspect]
     Active Substance: DABIGATRAN ETEXILATE MESYLATE
     Indication: ATRIAL FIBRILLATION
     Route: 048
     Dates: start: 20150101, end: 20180505

REACTIONS (7)
  - Gastric ulcer [Recovered/Resolved]
  - Hyperkalaemia [Recovered/Resolved]
  - Renal impairment [Recovered/Resolved]
  - Overdose [Recovered/Resolved]
  - Gingival bleeding [Recovered/Resolved]
  - Haematochezia [Recovered/Resolved]
  - Critical illness [Recovered/Resolved]

NARRATIVE: CASE EVENT DATE: 20180505
